FAERS Safety Report 7470235-2 (Version None)
Quarter: 2011Q2

REPORT INFORMATION
  Report Type: 
  Country: None (occurrence: None)
  Receive Date: 20110510
  Receipt Date: 20110429
  Transmission Date: 20111010
  Serious: Yes (Other)
  Sender: FDA-Public Use
  Company Number: PHHY2011US36435

PATIENT
  Age: 51 Year
  Sex: Female

DRUGS (2)
  1. CISPLATIN [Suspect]
     Indication: ANAL CANCER STAGE IV
     Dosage: UNK UKN, UNK
  2. FLUOROURACIL [Suspect]
     Indication: ANAL CANCER STAGE IV
     Dosage: UNK UKN, UNK

REACTIONS (6)
  - APHASIA [None]
  - MARCHIAFAVA-BIGNAMI DISEASE [None]
  - AGITATION [None]
  - CONFUSIONAL STATE [None]
  - HALLUCINATION, VISUAL [None]
  - APRAXIA [None]
